FAERS Safety Report 24693296 (Version 1)
Quarter: 2024Q4

REPORT INFORMATION
  Report Type: Spontaneous
  Country: US (occurrence: US)
  Receive Date: 20241203
  Receipt Date: 20241203
  Transmission Date: 20250114
  Serious: No
  Sender: BIOGEN
  Company Number: US-BIOGEN-2024BI01291913

PATIENT
  Age: 32 Year
  Sex: Female

DRUGS (3)
  1. ZURZUVAE [Suspect]
     Active Substance: ZURANOLONE
     Indication: Perinatal depression
     Route: 050
     Dates: start: 20241119, end: 20241125
  2. ZURZUVAE [Suspect]
     Active Substance: ZURANOLONE
     Route: 050
  3. ZOLOFT [Concomitant]
     Active Substance: SERTRALINE HYDROCHLORIDE
     Indication: Perinatal depression
     Route: 050

REACTIONS (12)
  - Panic attack [Unknown]
  - Agitation [Recovered/Resolved]
  - Anger [Unknown]
  - Panic reaction [Recovered/Resolved]
  - Gait inability [Recovered/Resolved]
  - Motor dysfunction [Unknown]
  - Morbid thoughts [Unknown]
  - Tremor [Unknown]
  - Insomnia [Recovered/Resolved]
  - Anxiety [Unknown]
  - Somnolence [Recovered/Resolved]
  - Asthenia [Unknown]

NARRATIVE: CASE EVENT DATE: 20241101
